FAERS Safety Report 20682789 (Version 4)
Quarter: 2022Q2

REPORT INFORMATION
  Report Type: Spontaneous
  Country: JP (occurrence: JP)
  Receive Date: 20220407
  Receipt Date: 20220527
  Transmission Date: 20220721
  Serious: Yes (Life-Threatening, Hospitalization, Other)
  Sender: FDA-Public Use
  Company Number: JP-NOVOPROD-905726

PATIENT
  Age: 11 Year
  Sex: Female
  Weight: 23.8 kg

DRUGS (3)
  1. NORDITROPIN [Suspect]
     Active Substance: SOMATROPIN
     Indication: Noonan syndrome
     Dosage: 1.30 MG, QD
     Route: 058
     Dates: start: 20140319, end: 20220325
  2. DESMOPRESSIN ACETATE [Concomitant]
     Active Substance: DESMOPRESSIN ACETATE
     Indication: Enuresis
     Dosage: 240 MG, QD
     Route: 048
  3. VESICARE [Concomitant]
     Active Substance: SOLIFENACIN SUCCINATE
     Indication: Enuresis
     Dosage: 2.5 MG, QD
     Route: 048

REACTIONS (2)
  - Intracranial tumour haemorrhage [Not Recovered/Not Resolved]
  - Astrocytoma, low grade [Not Recovered/Not Resolved]

NARRATIVE: CASE EVENT DATE: 20220325
